FAERS Safety Report 17112967 (Version 1)
Quarter: 2019Q4

REPORT INFORMATION
  Report Type: Spontaneous
  Country: CN (occurrence: CN)
  Receive Date: 20191204
  Receipt Date: 20191204
  Transmission Date: 20200122
  Serious: Yes (Other)
  Sender: FDA-Public Use
  Company Number: CN-009507513-1912CHN000328

PATIENT
  Age: 44 Year
  Sex: Female
  Weight: 65 kg

DRUGS (2)
  1. COZAAR [Suspect]
     Active Substance: LOSARTAN POTASSIUM
     Indication: HYPERTENSION
     Dosage: 1 TABLET PER DAY (ALSO REPORTED AS 50 MG)
     Route: 048
     Dates: start: 20190927, end: 20191102
  2. COZAAR [Suspect]
     Active Substance: LOSARTAN POTASSIUM
     Dosage: 1 TABLET PER DAY (ALSO REPORTED AS 50 MG)
     Route: 048
     Dates: start: 20191120, end: 20191123

REACTIONS (3)
  - Depressed mood [Recovering/Resolving]
  - Chest discomfort [Recovering/Resolving]
  - Suicidal ideation [Recovering/Resolving]

NARRATIVE: CASE EVENT DATE: 201910
